FAERS Safety Report 7607701-2 (Version None)
Quarter: 2011Q3

REPORT INFORMATION
  Report Type: 
  Country: None (occurrence: None)
  Receive Date: 20110713
  Receipt Date: 20110520
  Transmission Date: 20111222
  Serious: Yes (Other)
  Sender: FDA-Public Use
  Company Number: PHHY2011US24234

PATIENT
  Age: 93 Year
  Sex: Female

DRUGS (1)
  1. DIOVAN [Suspect]
     Dosage: 60 MG, UNK

REACTIONS (1)
  - TRANSIENT ISCHAEMIC ATTACK [None]
